FAERS Safety Report 6491508-6 (Version None)
Quarter: 2009Q4

REPORT INFORMATION
  Report Type: 
  Country: None (occurrence: None)
  Receive Date: 20091211
  Receipt Date: 20091208
  Transmission Date: 20100525
  Serious: Yes (Other)
  Sender: FDA-Public Use
  Company Number: US-BAYER-200939895NA

PATIENT
  Age: 76 Year
  Sex: Female
  Weight: 52 kg

DRUGS (3)
  1. AVELOX [Suspect]
     Indication: BRONCHITIS
     Dosage: UNIT DOSE: 400 MG
     Dates: start: 20090929, end: 20090929
  2. ADVAIR DISKUS 100/50 [Concomitant]
     Dates: start: 20030301
  3. COMBIVENT [Concomitant]
     Dates: start: 20030301

REACTIONS (3)
  - HEART RATE INCREASED [None]
  - LOSS OF CONSCIOUSNESS [None]
  - VISUAL IMPAIRMENT [None]
